FAERS Safety Report 9665893 (Version 2)
Quarter: 2013Q4

REPORT INFORMATION
  Report Type: Spontaneous
  Country: US (occurrence: US)
  Receive Date: 20131104
  Receipt Date: 20131114
  Transmission Date: 20140711
  Serious: Yes (Other)
  Sender: FDA-Public Use
  Company Number: US-BAXTER-2013BAX043111

PATIENT
  Sex: Male

DRUGS (7)
  1. DIANEAL LOW CALCIUM [Suspect]
     Indication: PERITONEAL DIALYSIS
     Route: 033
     Dates: start: 201306
  2. DIANEAL LOW CALCIUM [Suspect]
     Indication: PERITONEAL DIALYSIS
     Dosage: EVERY 4TH NIGHT
     Route: 033
     Dates: start: 201306
  3. EXTRANEAL [Suspect]
     Indication: PERITONEAL DIALYSIS
     Route: 033
     Dates: start: 201306
  4. LANTUS [Concomitant]
     Indication: TYPE 1 DIABETES MELLITUS
     Dosage: 20 UNITS TWICE A DAY
     Route: 058
  5. NOVOLOG [Concomitant]
     Indication: TYPE 1 DIABETES MELLITUS
     Dosage: 12 UNITS BEFORE EACH BREAKFAST
     Route: 058
  6. NOVOLOG [Concomitant]
     Dosage: 11 UNITS BEFORE EACH LUNCH
     Route: 058
  7. NOVOLOG [Concomitant]
     Dosage: 10 UNITS BEFORE EACH DINNER
     Route: 058

REACTIONS (4)
  - Peritonitis bacterial [Recovering/Resolving]
  - Peritoneal dialysis complication [Recovered/Resolved]
  - Headache [Unknown]
  - Blood glucose increased [Unknown]
